FAERS Safety Report 25265226 (Version 1)
Quarter: 2025Q2

REPORT INFORMATION
  Report Type: Other
  Country: JP (occurrence: JP)
  Receive Date: 20250502
  Receipt Date: 20250502
  Transmission Date: 20250717
  Serious: Yes (Other)
  Sender: APRECIA PHARMACEUTICALS
  Company Number: JP-Aprecia Pharmaceuticals-APRE20250186

PATIENT
  Sex: Male

DRUGS (11)
  1. LEVETIRACETAM [Suspect]
     Active Substance: LEVETIRACETAM
     Indication: Status epilepticus
     Route: 065
  2. LEVETIRACETAM [Suspect]
     Active Substance: LEVETIRACETAM
     Route: 065
  3. FLUNITRAZEPAM [Concomitant]
     Active Substance: FLUNITRAZEPAM
  4. LORAZEPAM [Concomitant]
     Active Substance: LORAZEPAM
  5. TRIAZOLAM [Concomitant]
     Active Substance: TRIAZOLAM
  6. VALPROIC ACID [Concomitant]
     Active Substance: VALPROIC ACID
  7. DEXTROSE [Concomitant]
     Active Substance: DEXTROSE MONOHYDRATE
     Indication: Hypoglycaemia
  8. RINGERS SOLUTION [Concomitant]
     Active Substance: CALCIUM CHLORIDE\POTASSIUM CHLORIDE\SODIUM CHLORIDE
     Indication: Fluid replacement
  9. RINGERS SOLUTION [Concomitant]
     Active Substance: CALCIUM CHLORIDE\POTASSIUM CHLORIDE\SODIUM CHLORIDE
  10. AMPICILLIN SODIUM\SULBACTAM SODIUM [Concomitant]
     Active Substance: AMPICILLIN SODIUM\SULBACTAM SODIUM
     Indication: Pneumonia aspiration
  11. MIDAZOLAM [Concomitant]
     Active Substance: MIDAZOLAM
     Indication: Sedation

REACTIONS (1)
  - Rhabdomyolysis [Recovered/Resolved]
